FAERS Safety Report 12826027 (Version 1)
Quarter: 2016Q4

REPORT INFORMATION
  Report Type: Spontaneous
  Country: US (occurrence: US)
  Receive Date: 20161007
  Receipt Date: 20161007
  Transmission Date: 20170207
  Serious: No
  Sender: FDA-Public Use
  Company Number: US-WATSON-2015-24833

PATIENT
  Sex: Female

DRUGS (5)
  1. FENTANYL-25 (WATSON LABORATORIES) [Suspect]
     Active Substance: FENTANYL
     Indication: PAIN
     Dosage: 25 MCG/HR, EVERY 72 HOURS
     Route: 062
     Dates: end: 20150918
  2. OXYCODONE                          /00045603/ [Concomitant]
     Active Substance: OXYCODONE
     Indication: PRODUCT USED FOR UNKNOWN INDICATION
     Dosage: 10 MG, BID
     Route: 065
  3. PROZAC [Concomitant]
     Active Substance: FLUOXETINE HYDROCHLORIDE
     Indication: PRODUCT USED FOR UNKNOWN INDICATION
     Dosage: PRN
     Route: 065
  4. STOOL SOFTENER (DOCUSATE CALCIUM) [Concomitant]
     Active Substance: DOCUSATE CALCIUM
     Indication: PRODUCT USED FOR UNKNOWN INDICATION
     Dosage: UNK, UNKNOWN
     Route: 065
  5. LYRICA [Concomitant]
     Active Substance: PREGABALIN
     Indication: PRODUCT USED FOR UNKNOWN INDICATION
     Dosage: UNK, UNKNOWN
     Route: 065

REACTIONS (9)
  - Drug effect incomplete [Not Recovered/Not Resolved]
  - Thinking abnormal [Recovered/Resolved]
  - Fatigue [Not Recovered/Not Resolved]
  - Hyporeflexia [Recovered/Resolved]
  - Sedation [Recovered/Resolved]
  - Feeling abnormal [Recovered/Resolved]
  - Hypoaesthesia [Not Recovered/Not Resolved]
  - Constipation [Not Recovered/Not Resolved]
  - Paraesthesia [Not Recovered/Not Resolved]
